FAERS Safety Report 17400094 (Version 2)
Quarter: 2020Q1

REPORT INFORMATION
  Report Type: Spontaneous
  Country: CN (occurrence: CN)
  Receive Date: 20200211
  Receipt Date: 20200219
  Transmission Date: 20200409
  Serious: Yes (Other)
  Sender: FDA-Public Use
  Company Number: CN-ACCORD-172095

PATIENT
  Age: 46 Year
  Sex: Female

DRUGS (2)
  1. MYCOPHENOLIC ACID. [Suspect]
     Active Substance: MYCOPHENOLIC ACID
     Indication: PEMPHIGUS
     Dosage: 500 MG TWICE DAILY
  2. PREDNISONE. [Concomitant]
     Active Substance: PREDNISONE
     Indication: PEMPHIGUS
     Dosage: 20-DAY TREATMENT, PREDNISONE GRADUALLY ADDED TO 120 MG?DAILY FROM 60 MG,

REACTIONS (1)
  - Acute generalised exanthematous pustulosis [Recovered/Resolved]
